FAERS Safety Report 5947852-1 (Version None)
Quarter: 2008Q4

REPORT INFORMATION
  Report Type: 
  Country: None (occurrence: None)
  Receive Date: 20081107
  Receipt Date: 20081023
  Transmission Date: 20090506
  Serious: Yes (Death)
  Sender: FDA-Public Use
  Company Number: 2008S1019151

PATIENT
  Age: 52 Year
  Sex: Male
  Weight: 102 kg

DRUGS (2)
  1. METFORMIN HCL [Suspect]
     Indication: DIABETES MELLITUS
     Dosage: 2 GM; ONCE; ORAL
     Route: 048
     Dates: start: 20080407
  2. CIPRAMIL (CITALOPRAM) [Suspect]
     Indication: DEPRESSION
     Dosage: 10 MG; ONCE; ORAL
     Route: 048
     Dates: start: 20080609

REACTIONS (2)
  - ASPHYXIA [None]
  - COMPLETED SUICIDE [None]
